FAERS Safety Report 13116250 (Version 1)
Quarter: 2017Q1

REPORT INFORMATION
  Report Type: Spontaneous
  Country: GB (occurrence: GB)
  Receive Date: 20170116
  Receipt Date: 20170116
  Transmission Date: 20170428
  Serious: Yes (Hospitalization)
  Sender: FDA-Public Use
  Company Number: GB-CONCORDIA PHARMACEUTICALS INC.-GSH201701-000234

PATIENT
  Sex: Female

DRUGS (1)
  1. PREDNISOLONE. [Suspect]
     Active Substance: PREDNISOLONE
     Route: 065

REACTIONS (7)
  - Pollakiuria [Unknown]
  - Drug ineffective [Unknown]
  - Haemorrhage [Unknown]
  - Abdominal discomfort [Unknown]
  - Exposure during pregnancy [Unknown]
  - Asthenia [Unknown]
  - Muscle spasms [Unknown]
